FAERS Safety Report 13542370 (Version 1)
Quarter: 2017Q2

REPORT INFORMATION
  Report Type: Spontaneous
  Country: US (occurrence: US)
  Receive Date: 20170512
  Receipt Date: 20170512
  Transmission Date: 20170830
  Serious: Yes (Other)
  Sender: FDA-Public Use
  Company Number: US-ROCHE-787554

PATIENT
  Age: 88 Year
  Sex: Male

DRUGS (2)
  1. BEVACIZUMAB [Suspect]
     Active Substance: BEVACIZUMAB
     Indication: ANGIOSARCOMA
     Dosage: CALCULATED DOSE: 350 MG, TOTAL 4 TREAMENTS WHILE ON RADIOTHERAPY.
     Route: 042
  2. BEVACIZUMAB [Suspect]
     Active Substance: BEVACIZUMAB
     Dosage: FOR 3 MONTHS, TOTAL 6 DOSES, DISCONTINUED
     Route: 042

REACTIONS (1)
  - Cerebrovascular accident [Unknown]
